FAERS Safety Report 14129052 (Version 1)
Quarter: 2017Q4

REPORT INFORMATION
  Report Type: Spontaneous
  Country: FR (occurrence: FR)
  Receive Date: 20171026
  Receipt Date: 20171026
  Transmission Date: 20180321
  Serious: Yes (Hospitalization)
  Sender: FDA-Public Use
  Company Number: FR-PFIZER INC-2017459532

PATIENT
  Age: 71 Year
  Sex: Female

DRUGS (5)
  1. SOLU-MEDROL [Suspect]
     Active Substance: METHYLPREDNISOLONE SODIUM SUCCINATE
     Indication: NEUROSARCOIDOSIS
     Dosage: 1 G, DAILY
     Route: 042
     Dates: start: 20170718, end: 20170720
  2. CORTANCYL [Suspect]
     Active Substance: PREDNISONE
     Indication: NEUROSARCOIDOSIS
     Dosage: 30 MG, DAILY
     Route: 048
     Dates: start: 20170720
  3. ENDOXAN /00021101/ [Suspect]
     Active Substance: CYCLOPHOSPHAMIDE
     Indication: NEUROSARCOIDOSIS
     Dosage: 1 G, CYCLIC
     Route: 042
     Dates: start: 20170725, end: 20170725
  4. CORGARD [Concomitant]
     Active Substance: NADOLOL
  5. LEVOTHYROX [Concomitant]
     Active Substance: LEVOTHYROXINE

REACTIONS (1)
  - Pulmonary embolism [Recovering/Resolving]

NARRATIVE: CASE EVENT DATE: 20170814
